FAERS Safety Report 7964363-2 (Version None)
Quarter: 2011Q4

REPORT INFORMATION
  Report Type: 
  Country: None (occurrence: None)
  Receive Date: 20111121
  Receipt Date: 20110726
  Transmission Date: 20120403
  Serious: No
  Sender: FDA-Public Use
  Company Number: 1000022473

PATIENT
  Age: 71 Year
  Sex: Male

DRUGS (6)
  1. VIIBRYD [Suspect]
     Indication: DEPRESSION
     Dosage: 10 MG (10 MG, 1 IN 1 D), ORAL 20 MG (20 MG, 1 IN 1 D), ORAL
     Route: 048
     Dates: start: 20110721
  2. VIIBRYD [Suspect]
     Indication: DEPRESSION
     Dosage: 10 MG (10 MG, 1 IN 1 D), ORAL 20 MG (20 MG, 1 IN 1 D), ORAL
     Route: 048
     Dates: start: 20110714, end: 20110720
  3. PROVIGIL [Suspect]
  4. SEROQUEL (QUETIAPINE) (QUETIAPINE) [Concomitant]
  5. MIRTAZAPINE [Concomitant]
  6. CLONAZEPAM [Concomitant]

REACTIONS (2)
  - DRUG INTERACTION [None]
  - FLUSHING [None]
